FAERS Safety Report 5752054-8 (Version None)
Quarter: 2008Q2

REPORT INFORMATION
  Report Type: 
  Country: None (occurrence: None)
  Receive Date: 20080527
  Receipt Date: 20080318
  Transmission Date: 20081010
  Serious: Yes (Other)
  Sender: FDA-Public Use
  Company Number: OPER20080053

PATIENT
  Age: 44 Year
  Sex: Female

DRUGS (5)
  1. OPANA ER [Suspect]
     Indication: PAIN
     Dosage: 40 MG, 1 TAB BID, PER ORAL
     Route: 048
     Dates: start: 20070101
  2. PERCOCET [Concomitant]
  3. PAROXETINE HCL [Concomitant]
  4. TIZANIDINE HCL [Concomitant]
  5. ALPRAZOLAM ER [Concomitant]

REACTIONS (7)
  - DISCOMFORT [None]
  - FEAR [None]
  - HALLUCINATION [None]
  - HEART RATE INCREASED [None]
  - PHARMACEUTICAL PRODUCT COMPLAINT [None]
  - TREMOR [None]
  - VISUAL DISTURBANCE [None]
